FAERS Safety Report 15386841 (Version 3)
Quarter: 2020Q2

REPORT INFORMATION
  Report Type: Spontaneous
  Country: US (occurrence: US)
  Receive Date: 20180914
  Receipt Date: 20200407
  Transmission Date: 20200713
  Serious: No
  Sender: FDA-Public Use
  Company Number: US-PFIZER INC-2018370593

PATIENT
  Age: 76 Year
  Sex: Female
  Weight: 83.91 kg

DRUGS (3)
  1. LOSARTAN POTASSIUM. [Concomitant]
     Active Substance: LOSARTAN POTASSIUM
     Indication: BLOOD PRESSURE ABNORMAL
     Dosage: 50 MG, 1X/DAY
  2. IBRANCE [Suspect]
     Active Substance: PALBOCICLIB
     Indication: BREAST CANCER FEMALE
     Dosage: 125 MG, CYCLIC (ONCE DAILY FOR 21 DAYS THEN OFF FOR 7 DAYS)
  3. XARELTO [Concomitant]
     Active Substance: RIVAROXABAN
     Indication: ANTICOAGULANT THERAPY
     Dosage: 20 MG, 1X/DAY

REACTIONS (9)
  - Malaise [Unknown]
  - Pain [Unknown]
  - Arthropod bite [Unknown]
  - Scratch [Unknown]
  - Gait inability [Unknown]
  - Neuralgia [Not Recovered/Not Resolved]
  - Insomnia [Unknown]
  - Infected bite [Unknown]
  - Balance disorder [Unknown]

NARRATIVE: CASE EVENT DATE: 201910
